FAERS Safety Report 22220658 (Version 4)
Quarter: 2025Q4

REPORT INFORMATION
  Report Type: Report from Study
  Country: JP (occurrence: JP)
  Receive Date: 20230417
  Receipt Date: 20251202
  Transmission Date: 20260119
  Serious: Yes (Hospitalization, Other)
  Sender: NOVO NORDISK
  Company Number: JP-NOVOPROD-1049402

PATIENT
  Age: 14 Year
  Sex: Male
  Weight: 67 kg

DRUGS (9)
  1. LOXOPROFEN [Concomitant]
     Active Substance: LOXOPROFEN
     Indication: Palliative care
     Dosage: 180 MG
     Dates: start: 20230224, end: 20230305
  2. COAGULATION FACTOR IX (RECOMBINANT), GLYCOPEGYLATED [Suspect]
     Active Substance: COAGULATION FACTOR IX (RECOMBINANT), GLYCOPEGYLATED
     Dosage: 2500 IU
     Route: 042
     Dates: start: 20230219
  3. COAGULATION FACTOR IX (RECOMBINANT), GLYCOPEGYLATED [Suspect]
     Active Substance: COAGULATION FACTOR IX (RECOMBINANT), GLYCOPEGYLATED
     Dosage: 4000 IU
     Route: 042
     Dates: start: 20230224
  4. COAGULATION FACTOR IX (RECOMBINANT), GLYCOPEGYLATED [Suspect]
     Active Substance: COAGULATION FACTOR IX (RECOMBINANT), GLYCOPEGYLATED
     Dosage: 3000 IU
     Route: 042
     Dates: start: 20230312
  5. COAGULATION FACTOR IX (RECOMBINANT), GLYCOPEGYLATED [Suspect]
     Active Substance: COAGULATION FACTOR IX (RECOMBINANT), GLYCOPEGYLATED
     Dosage: 2000 IU
     Route: 042
     Dates: start: 20230227
  6. COAGULATION FACTOR IX (RECOMBINANT), GLYCOPEGYLATED [Suspect]
     Active Substance: COAGULATION FACTOR IX (RECOMBINANT), GLYCOPEGYLATED
     Dosage: 2000 IU
     Route: 042
     Dates: start: 20230303
  7. COAGULATION FACTOR IX (RECOMBINANT), GLYCOPEGYLATED [Suspect]
     Active Substance: COAGULATION FACTOR IX (RECOMBINANT), GLYCOPEGYLATED
     Dosage: 2000 IU
     Route: 042
     Dates: start: 20230307
  8. COAGULATION FACTOR IX (RECOMBINANT), GLYCOPEGYLATED [Suspect]
     Active Substance: COAGULATION FACTOR IX (RECOMBINANT), GLYCOPEGYLATED
     Indication: Factor IX deficiency
     Dosage: 2000IU/KG
     Route: 042
     Dates: start: 20190729
  9. COAGULATION FACTOR IX (RECOMBINANT), GLYCOPEGYLATED [Suspect]
     Active Substance: COAGULATION FACTOR IX (RECOMBINANT), GLYCOPEGYLATED
     Dosage: 2000 IU
     Route: 042
     Dates: start: 20230225

REACTIONS (4)
  - Haemarthrosis [Recovered/Resolved]
  - Arthritis [Recovered/Resolved]
  - Arthralgia [Unknown]
  - Haematoma [Unknown]

NARRATIVE: CASE EVENT DATE: 20220916
